FAERS Safety Report 7089318-4 (Version None)
Quarter: 2010Q4

REPORT INFORMATION
  Report Type: 
  Country: None (occurrence: None)
  Receive Date: 20101108
  Receipt Date: 20101025
  Transmission Date: 20110411
  Serious: Yes (Hospitalization)
  Sender: FDA-Public Use
  Company Number: FR-JNJFOC-20101101595

PATIENT
  Sex: Male

DRUGS (5)
  1. IXPRIM [Suspect]
     Indication: PAIN
     Route: 048
  2. DOLIPRANE [Interacting]
     Indication: PAIN
     Route: 048
  3. PREVISCAN (FLUINDIONE) [Interacting]
     Indication: AORTIC VALVE REPLACEMENT
     Route: 048
  4. PREVISCAN (FLUINDIONE) [Interacting]
     Route: 048
  5. NOVORAPID [Concomitant]
     Route: 065

REACTIONS (4)
  - ANAEMIA [None]
  - DRUG INTERACTION [None]
  - INTERNATIONAL NORMALISED RATIO INCREASED [None]
  - MUSCLE HAEMORRHAGE [None]
